FAERS Safety Report 5387542-X (Version None)
Quarter: 2007Q3

REPORT INFORMATION
  Report Type: 
  Country: None (occurrence: None)
  Receive Date: 20070712
  Receipt Date: 20070702
  Transmission Date: 20080115
  Serious: Yes (Death)
  Sender: FDA-Public Use
  Company Number: B0478466A

PATIENT
  Age: 75 Year
  Sex: Male

DRUGS (3)
  1. CHLORAMBUCIL (FORMULATION UNKNOWN) (CHLORAMBUCIL) (GENERIC) [Suspect]
     Indication: WALDENSTROM'S MACROGLOBULINAEMIA
     Dosage: 10 MG/ PER DAY /
  2. CYCLOPHOSPHAMIDE [Suspect]
     Indication: WALDENSTROM'S MACROGLOBULINAEMIA
     Dosage: 150 MG / PER DAY /
  3. WHOLE BLOOD [Concomitant]

REACTIONS (5)
  - ABNORMAL BEHAVIOUR [None]
  - ACUTE MYELOID LEUKAEMIA [None]
  - HAEMOGLOBIN DECREASED [None]
  - PALLOR [None]
  - SPEECH DISORDER [None]
